FAERS Safety Report 8174698-9 (Version None)
Quarter: 2012Q1

REPORT INFORMATION
  Report Type: 
  Country: None (occurrence: None)
  Receive Date: 20120229
  Receipt Date: 20120220
  Transmission Date: 20120608
  Serious: Yes (Hospitalization)
  Sender: FDA-Public Use
  Company Number: CA-GLAXOSMITHKLINE-A0966609A

PATIENT
  Age: 7 Year
  Sex: Male

DRUGS (2)
  1. VENTOLIN [Suspect]
     Indication: ASTHMA
     Route: 065
     Dates: start: 20120101
  2. FLOVENT [Concomitant]

REACTIONS (7)
  - SWOLLEN TONGUE [None]
  - OEDEMA MOUTH [None]
  - CHEILITIS [None]
  - LIP SWELLING [None]
  - CHAPPED LIPS [None]
  - LIP PRURITUS [None]
  - HYPERSENSITIVITY [None]
